FAERS Safety Report 4768384-2 (Version None)
Quarter: 2005Q3

REPORT INFORMATION
  Report Type: 
  Country: None (occurrence: None)
  Receive Date: 20050906
  Receipt Date: 20050725
  Transmission Date: 20060218
  Serious: No
  Sender: FDA-Public Use
  Company Number: 2005-BP-12632BP

PATIENT
  Sex: Female

DRUGS (4)
  1. SPIRIVA [Suspect]
     Indication: CHRONIC OBSTRUCTIVE PULMONARY DISEASE
     Dosage: 18 MCG (18 MCG , QD),  IH
     Route: 055
     Dates: start: 20040101, end: 20050501
  2. ADVAIR DISKUS 100/50 [Concomitant]
  3. FOSAMAX [Concomitant]
  4. ENALAPRIL MALEATE [Concomitant]

REACTIONS (1)
  - BRONCHOSPASM [None]
